FAERS Safety Report 15362453 (Version 1)
Quarter: 2018Q3

REPORT INFORMATION
  Report Type: Spontaneous
  Country: US (occurrence: US)
  Receive Date: 20180831
  Receipt Date: 20180831
  Transmission Date: 20181010
  Serious: Yes (Other)
  Sender: FDA-Public Use
  Company Number: None

PATIENT
  Age: 22 Year
  Sex: Male
  Weight: 65.32 kg

DRUGS (1)
  1. ARIPIPRAZOLE 10MG [Suspect]
     Active Substance: ARIPIPRAZOLE

REACTIONS (1)
  - Swollen tongue [None]
